FAERS Safety Report 4832437-0 (Version None)
Quarter: 2005Q4

REPORT INFORMATION
  Report Type: 
  Country: None (occurrence: None)
  Receive Date: 20051121
  Receipt Date: 20051010
  Transmission Date: 20060501
  Serious: Yes (Hospitalization)
  Sender: FDA-Public Use
  Company Number: DE-BRISTOL-MYERS SQUIBB COMPANY-13139803

PATIENT
  Age: 39 Year
  Sex: Female
  Weight: 89 kg

DRUGS (4)
  1. TAXOL [Suspect]
     Indication: BREAST CANCER
     Route: 042
     Dates: start: 20051005, end: 20051005
  2. EPIRUBICIN [Suspect]
     Indication: BREAST CANCER
     Route: 042
     Dates: start: 20050822, end: 20050921
  3. NEULASTA [Concomitant]
     Route: 058
     Dates: start: 20050823
  4. DARBEPOETIN ALFA [Concomitant]
     Route: 058
     Dates: start: 20050822

REACTIONS (2)
  - INFECTION [None]
  - WOUND DEHISCENCE [None]
